FAERS Safety Report 21482943 (Version 1)
Quarter: 2022Q4

REPORT INFORMATION
  Report Type: Spontaneous
  Country: IN (occurrence: IN)
  Receive Date: 20221020
  Receipt Date: 20221020
  Transmission Date: 20230112
  Serious: Yes (Other)
  Sender: FDA-Public Use
  Company Number: IN-SUN PHARMACEUTICAL INDUSTRIES LTD-2022R1-359656

PATIENT
  Age: 67 Year
  Sex: Male

DRUGS (8)
  1. HYDROXYCHLOROQUINE [Suspect]
     Active Substance: HYDROXYCHLOROQUINE
     Indication: COVID-19
     Dosage: UNK
     Route: 065
  2. METHYLPREDNISOLONE [Suspect]
     Active Substance: METHYLPREDNISOLONE
     Indication: COVID-19
     Dosage: UNK
     Route: 065
  3. OSELTAMIVIR [Suspect]
     Active Substance: OSELTAMIVIR
     Indication: COVID-19
     Dosage: UNK
     Route: 065
  4. ASCORBIC ACID [Suspect]
     Active Substance: ASCORBIC ACID
     Indication: COVID-19
     Dosage: UNK
     Route: 065
  5. AZITHROMYCIN [Suspect]
     Active Substance: AZITHROMYCIN
     Indication: COVID-19
     Dosage: UNK
     Route: 065
  6. CEFOPERAZONE\SULBACTAM [Suspect]
     Active Substance: CEFOPERAZONE\SULBACTAM
     Indication: COVID-19
     Dosage: UNK
     Route: 065
  7. ENOXAPARIN SODIUM [Suspect]
     Active Substance: ENOXAPARIN SODIUM
     Indication: COVID-19
     Dosage: UNK
     Route: 065
  8. ZINC [Suspect]
     Active Substance: ZINC
     Indication: COVID-19
     Dosage: UNK
     Route: 065

REACTIONS (1)
  - Therapy partial responder [Unknown]
